FAERS Safety Report 6818032-2 (Version None)
Quarter: 2010Q3

REPORT INFORMATION
  Report Type: 
  Country: None (occurrence: None)
  Receive Date: 20100706
  Receipt Date: 20100629
  Transmission Date: 20110219
  Serious: Yes (Life-Threatening, Other)
  Sender: FDA-Public Use
  Company Number: US-ASTRAZENECA-2010SE30309

PATIENT
  Age: 27511 Day
  Sex: Female

DRUGS (2)
  1. ARIMIDEX [Suspect]
     Indication: BREAST CANCER
     Dosage: ONE TABLET DAILY
     Route: 048
     Dates: start: 20091201
  2. LIPITOR [Concomitant]
     Dosage: DAILY
     Route: 048

REACTIONS (5)
  - AMNESIA [None]
  - CONFUSIONAL STATE [None]
  - DEMENTIA WITH LEWY BODIES [None]
  - HOT FLUSH [None]
  - LOSS OF CONSCIOUSNESS [None]
